FAERS Safety Report 24462555 (Version 1)
Quarter: 2024Q4

REPORT INFORMATION
  Report Type: Spontaneous
  Country: US (occurrence: US)
  Receive Date: 20241018
  Receipt Date: 20241018
  Transmission Date: 20250115
  Serious: Yes (Hospitalization, Other)
  Sender: RANBAXY
  Company Number: US-SUN PHARMACEUTICAL INDUSTRIES LTD-2024R1-473775

PATIENT
  Age: 35 Year
  Sex: Female

DRUGS (1)
  1. METHADONE [Suspect]
     Active Substance: METHADONE HYDROCHLORIDE
     Indication: Asthma
     Dosage: 100 MILLIGRAM, DAILY
     Route: 065

REACTIONS (2)
  - Condition aggravated [Unknown]
  - Exposure during pregnancy [Unknown]
